FAERS Safety Report 11936102 (Version 1)
Quarter: 2016Q1

REPORT INFORMATION
  Report Type: Report from Study
  Country: US (occurrence: US)
  Receive Date: 20160121
  Receipt Date: 20160121
  Transmission Date: 20160526
  Serious: No
  Sender: FDA-Public Use
  Company Number: US-AMGEN-USASL2015111443

PATIENT
  Age: 73 Year
  Sex: Male

DRUGS (5)
  1. KYPROLIS [Suspect]
     Active Substance: CARFILZOMIB
     Dosage: 60 MG, UNK
     Route: 065
     Dates: start: 20151016
  2. KYPROLIS [Suspect]
     Active Substance: CARFILZOMIB
     Dosage: 25 MG, UNK
     Route: 065
     Dates: start: 20151120
  3. KYPROLIS [Suspect]
     Active Substance: CARFILZOMIB
     Indication: PLASMA CELL MYELOMA
     Dosage: UNK
     Route: 065
     Dates: start: 20151015
  4. KYPROLIS [Suspect]
     Active Substance: CARFILZOMIB
     Dosage: 25 MG, UNK
     Route: 065
     Dates: start: 20151119
  5. REVLIMID [Suspect]
     Active Substance: LENALIDOMIDE
     Indication: PLASMA CELL MYELOMA
     Dosage: 25 MG, UNK
     Route: 065

REACTIONS (12)
  - Flatulence [Recovered/Resolved]
  - Asthenia [Unknown]
  - Dry mouth [Unknown]
  - Platelet count abnormal [Unknown]
  - Ageusia [Unknown]
  - Paraesthesia oral [Unknown]
  - Fatigue [Unknown]
  - White blood cell count abnormal [Unknown]
  - Diarrhoea [Recovered/Resolved]
  - Hypoaesthesia oral [Unknown]
  - Insomnia [Recovered/Resolved]
  - Haemoglobin abnormal [Unknown]

NARRATIVE: CASE EVENT DATE: 2015
